FAERS Safety Report 16759686 (Version 1)
Quarter: 2019Q3

REPORT INFORMATION
  Report Type: Spontaneous
  Country: GB (occurrence: GB)
  Receive Date: 20190830
  Receipt Date: 20190830
  Transmission Date: 20191005
  Serious: Yes (Other)
  Sender: FDA-Public Use
  Company Number: GB-PFIZER INC-2019366593

PATIENT
  Age: 67 Year
  Sex: Female
  Weight: 41 kg

DRUGS (12)
  1. SALINE [Concomitant]
     Active Substance: SODIUM CHLORIDE
     Dosage: 1 DF, UNK(ONE FOUR TIMES A DAY)USING NEBULISER
     Dates: start: 20190619, end: 20190717
  2. SALAMOL [Concomitant]
     Active Substance: ALBUTEROL
     Dosage: 2 DF, AS NEEDED
     Route: 055
     Dates: start: 20181210
  3. TRIMBOW [Concomitant]
     Active Substance: BECLOMETHASONE DIPROPIONATE\FORMOTEROL FUMARATE\GLYCOPYRROLATE
     Dosage: 4 DF, 1X/DAY(PUFFS)
     Dates: start: 20190109
  4. ALENDRONIC ACID [Concomitant]
     Active Substance: ALENDRONIC ACID
     Dosage: 1 DF, WEEKLY
     Dates: start: 20190103
  5. ATORVASTATIN [Suspect]
     Active Substance: ATORVASTATIN
     Dosage: 20 MG, 1X/DAY
     Dates: start: 20190701
  6. COTRIMOXAZOLE [Concomitant]
     Active Substance: SULFAMETHOXAZOLE\TRIMETHOPRIM
     Dosage: 6 DF, WEEKLY(MONDAY, WEDNESDAY AND FRIDAY)
     Dates: start: 20181123, end: 20190617
  7. LAXIDO [Concomitant]
     Active Substance: POLYETHYLENE GLYCOL 3350\POTASSIUM CHLORIDE\SODIUM BICARBONATE\SODIUM CHLORIDE
     Dosage: UNK, AS NEEDED (TAKE ONE OR TWO DAILY)
     Dates: start: 20180314
  8. QUININE [Concomitant]
     Active Substance: QUININE
     Dosage: 1 DF, 1X/DAY (AT NIGHT)
     Dates: start: 20180521
  9. ADCAL [Concomitant]
     Dosage: 4 DF, 1X/DAY
     Dates: start: 20180521
  10. PREDNISOLONE. [Concomitant]
     Active Substance: PREDNISOLONE
     Dosage: UNK(TAKE 6 DAILY FOR 3 DAYS, 5 FOR 3 DAYS, 4 FOR 3 DAYS, 2 FOR 3 DAYS, 1 FOR 3 DAYS)
     Dates: start: 20190719
  11. SALBUTAMOL [Concomitant]
     Active Substance: ALBUTEROL
     Dosage: 1 DF, UNK(1 DOSE 3-4 TIMES/DAY)
     Route: 055
     Dates: start: 20181210
  12. CARBOCISTEINE [Concomitant]
     Active Substance: CARBOCYSTEINE
     Dosage: 30 ML, 1X/DAY
     Dates: start: 20190311

REACTIONS (3)
  - Condition aggravated [Recovered/Resolved]
  - Wheezing [Recovered/Resolved]
  - Dyspnoea [Recovered/Resolved]
